FAERS Safety Report 14323798 (Version 1)
Quarter: 2017Q4

REPORT INFORMATION
  Report Type: Spontaneous
  Country: BR (occurrence: BR)
  Receive Date: 20171226
  Receipt Date: 20171226
  Transmission Date: 20180321
  Serious: Yes (Other)
  Sender: FDA-Public Use
  Company Number: BR-ROCHE-2041263

PATIENT
  Age: 65 Year
  Sex: Female
  Weight: 55 kg

DRUGS (15)
  1. DOXORUBICIN [Concomitant]
     Active Substance: DOXORUBICIN
     Indication: NEOADJUVANT THERAPY
  2. DOCETAXEL. [Concomitant]
     Active Substance: DOCETAXEL
     Indication: NEOADJUVANT THERAPY
  3. HERCEPTIN [Suspect]
     Active Substance: TRASTUZUMAB
     Indication: PALLIATIVE CARE
  4. DIPYRONE [Concomitant]
     Active Substance: DIPYRONE
     Route: 042
  5. CYCLOPHOSPHAMIDE. [Concomitant]
     Active Substance: CYCLOPHOSPHAMIDE
     Indication: NEOADJUVANT THERAPY
  6. ENOXAPARIN [Concomitant]
     Active Substance: ENOXAPARIN
     Indication: PROPHYLAXIS
     Route: 058
     Dates: start: 20160218, end: 20160320
  7. TAMOXIFEN [Concomitant]
     Active Substance: TAMOXIFEN
     Indication: BREAST CANCER
  8. ANASTROZOLE. [Concomitant]
     Active Substance: ANASTROZOLE
     Indication: BREAST CANCER
  9. DIPYRONE [Concomitant]
     Active Substance: DIPYRONE
     Route: 048
     Dates: start: 20160218, end: 20160320
  10. TRAMADOL. [Concomitant]
     Active Substance: TRAMADOL
     Route: 048
     Dates: start: 20160218, end: 20160320
  11. CAPECITABINE. [Concomitant]
     Active Substance: CAPECITABINE
     Indication: BREAST CANCER
     Route: 048
     Dates: start: 20160307, end: 20160322
  12. HERCEPTIN [Suspect]
     Active Substance: TRASTUZUMAB
     Indication: BREAST CANCER
     Route: 042
     Dates: start: 20160310, end: 20160310
  13. CAPECITABINE. [Concomitant]
     Active Substance: CAPECITABINE
     Indication: PALLIATIVE CARE
     Route: 048
     Dates: start: 20160307, end: 20160322
  14. MINERAL OIL. [Concomitant]
     Active Substance: MINERAL OIL
     Dosage: 1 SPOON EVERY 8 HOURS
     Route: 048
     Dates: start: 20160218, end: 20160320
  15. FLUOROURACIL. [Concomitant]
     Active Substance: FLUOROURACIL
     Indication: NEOADJUVANT THERAPY

REACTIONS (5)
  - Metastases to heart [Not Recovered/Not Resolved]
  - Metastases to pleura [Not Recovered/Not Resolved]
  - Chills [Recovered/Resolved]
  - Metastases to bone [Not Recovered/Not Resolved]
  - Tremor [Recovered/Resolved]

NARRATIVE: CASE EVENT DATE: 20160310
